FAERS Safety Report 11891660 (Version 1)
Quarter: 2016Q1

REPORT INFORMATION
  Report Type: Spontaneous
  Country: US (occurrence: US)
  Receive Date: 20160106
  Receipt Date: 20160106
  Transmission Date: 20160526
  Serious: No
  Sender: FDA-Public Use
  Company Number: US-DRREDDYS-USA/USA/15/0048302

PATIENT
  Age: 59 Year
  Sex: Female
  Weight: 92.5 kg

DRUGS (2)
  1. HABITROL [Suspect]
     Active Substance: NICOTINE
     Indication: SMOKING CESSATION THERAPY
     Route: 062
     Dates: start: 2014
  2. HABITROL [Suspect]
     Active Substance: NICOTINE
     Route: 062
     Dates: start: 20150524

REACTIONS (1)
  - Product adhesion issue [Unknown]
